FAERS Safety Report 23529887 (Version 1)
Quarter: 2024Q1

REPORT INFORMATION
  Report Type: Report from Study
  Country: ES (occurrence: ES)
  Receive Date: 20240216
  Receipt Date: 20240216
  Transmission Date: 20240410
  Serious: Yes (Death, Hospitalization, Other)
  Sender: FDA-Public Use
  Company Number: ES-Merck Healthcare KGaA-2024006321

PATIENT
  Age: 88 Year
  Sex: Female

DRUGS (1)
  1. LEVOTHYROXINE [Suspect]
     Active Substance: LEVOTHYROXINE\LEVOTHYROXINE SODIUM
     Indication: Product used for unknown indication

REACTIONS (6)
  - Death [Fatal]
  - Thyroid disorder [Unknown]
  - General physical health deterioration [Unknown]
  - Product dispensing error [Unknown]
  - Wrong product administered [Unknown]
  - Product name confusion [Unknown]

NARRATIVE: CASE EVENT DATE: 20240114
